FAERS Safety Report 4280697-X (Version None)
Quarter: 2004Q1

REPORT INFORMATION
  Report Type: 
  Country: None (occurrence: None)
  Receive Date: 20040127
  Receipt Date: 20040112
  Transmission Date: 20041129
  Serious: Yes (Hospitalization)
  Sender: FDA-Public Use
  Company Number: 178122

PATIENT
  Age: 32 Year
  Sex: Female

DRUGS (3)
  1. AVONEX [Suspect]
     Indication: MULTIPLE SCLEROSIS
     Dosage: 30 MCG QW IM
     Route: 030
     Dates: start: 20010701, end: 20030801
  2. ZANAFLEX [Concomitant]
  3. NEURONTIN [Concomitant]

REACTIONS (2)
  - BLADDER DISORDER [None]
  - RENAL FAILURE [None]
